FAERS Safety Report 18106468 (Version 1)
Quarter: 2020Q3

REPORT INFORMATION
  Report Type: Spontaneous
  Country: DE (occurrence: DE)
  Receive Date: 20200803
  Receipt Date: 20200803
  Transmission Date: 20201103
  Serious: Yes (Hospitalization)
  Sender: FDA-Public Use
  Company Number: NVSC2020DE210621

PATIENT
  Age: 73 Year
  Sex: Female
  Weight: 60 kg

DRUGS (26)
  1. DARATUMUMAB [Suspect]
     Active Substance: DARATUMUMAB
     Dosage: UNK
     Route: 065
     Dates: start: 20190506
  2. DARATUMUMAB [Suspect]
     Active Substance: DARATUMUMAB
     Dosage: 800 MG, UNKNOWN
     Route: 065
     Dates: start: 20190311
  3. VELCADE [Suspect]
     Active Substance: BORTEZOMIB
     Indication: PLASMA CELL MYELOMA
     Dosage: 2.1 MG, UNKNOWN
     Route: 065
     Dates: start: 20190211, end: 20190425
  4. DARATUMUMAB [Suspect]
     Active Substance: DARATUMUMAB
     Dosage: 150 MG, UNKNOWN
     Route: 065
     Dates: start: 20190225
  5. DARATUMUMAB [Suspect]
     Active Substance: DARATUMUMAB
     Dosage: 150 MG, UNKNOWN
     Route: 065
     Dates: start: 20190304
  6. DARATUMUMAB [Suspect]
     Active Substance: DARATUMUMAB
     Dosage: 800 MG, UNKNOWN
     Route: 065
     Dates: start: 20190430
  7. DARATUMUMAB [Suspect]
     Active Substance: DARATUMUMAB
     Dosage: 150 MG, UNKNOWN
     Route: 065
     Dates: start: 20190430
  8. NOVALGIN [Concomitant]
     Indication: PRODUCT USED FOR UNKNOWN INDICATION
     Dosage: UNK
     Route: 065
  9. DARATUMUMAB [Suspect]
     Active Substance: DARATUMUMAB
     Dosage: 150 MG, UNKNOWN
     Route: 065
     Dates: start: 20190211
  10. DARATUMUMAB [Suspect]
     Active Substance: DARATUMUMAB
     Dosage: 800 MG, UNKNOWN
     Route: 065
     Dates: start: 20190218
  11. DARATUMUMAB [Suspect]
     Active Substance: DARATUMUMAB
     Dosage: 950 MG, UNKNOWN
     Route: 065
     Dates: start: 20190304, end: 20190311
  12. DARATUMUMAB [Suspect]
     Active Substance: DARATUMUMAB
     Dosage: 90 MG, UNKNOWN
     Route: 065
     Dates: start: 20190423
  13. DARATUMUMAB [Suspect]
     Active Substance: DARATUMUMAB
     Dosage: 860 MG, UNKNOWN
     Route: 065
     Dates: start: 20190423
  14. DARATUMUMAB [Suspect]
     Active Substance: DARATUMUMAB
     Dosage: 800 MG, UNKNOWN
     Route: 065
     Dates: start: 20190513
  15. DARATUMUMAB [Suspect]
     Active Substance: DARATUMUMAB
     Dosage: 640 MG, UNKNOWN
     Route: 065
     Dates: start: 20190415
  16. DARATUMUMAB [Suspect]
     Active Substance: DARATUMUMAB
     Dosage: 150 MG, UNKNOWN
     Route: 065
     Dates: start: 20190513
  17. DARATUMUMAB [Suspect]
     Active Substance: DARATUMUMAB
     Indication: PLASMA CELL MYELOMA
     Dosage: 800 MG, UNKNOWN
     Route: 065
     Dates: start: 20190211
  18. DARATUMUMAB [Suspect]
     Active Substance: DARATUMUMAB
     Dosage: 150 MG, UNKNOWN
     Route: 065
     Dates: start: 20190218
  19. DARATUMUMAB [Suspect]
     Active Substance: DARATUMUMAB
     Dosage: 150 MG, UNKNOWN
     Route: 065
     Dates: start: 20190311
  20. DEXAMETHASONE. [Suspect]
     Active Substance: DEXAMETHASONE
     Indication: PLASMA CELL MYELOMA
     Dosage: 8 MG, UNKNOWN
     Route: 065
     Dates: start: 20190304, end: 20190426
  21. DARATUMUMAB [Suspect]
     Active Substance: DARATUMUMAB
     Dosage: 800 MG, UNKNOWN
     Route: 065
     Dates: start: 20190225
  22. DARATUMUMAB [Suspect]
     Active Substance: DARATUMUMAB
     Dosage: 800 MG, UNKNOWN
     Route: 065
     Dates: start: 20190318
  23. DARATUMUMAB [Suspect]
     Active Substance: DARATUMUMAB
     Dosage: UNK
     Route: 065
  24. DARATUMUMAB [Suspect]
     Active Substance: DARATUMUMAB
     Dosage: 800 MG, UNKNOWN
     Route: 065
     Dates: start: 20190304
  25. DARATUMUMAB [Suspect]
     Active Substance: DARATUMUMAB
     Dosage: 150 MG, UNKNOWN
     Route: 065
     Dates: start: 20190318
  26. DARATUMUMAB [Suspect]
     Active Substance: DARATUMUMAB
     Dosage: 310 MG, UNKNOWN
     Route: 065
     Dates: start: 20190415

REACTIONS (1)
  - Pneumonia [Recovering/Resolving]

NARRATIVE: CASE EVENT DATE: 20190318
